FAERS Safety Report 8453868 (Version 4)
Quarter: 2012Q4

REPORT INFORMATION
  Report Type: 
  Country: US (occurrence: US)
  Receive Date: 20120312
  Receipt Date: 20121011
  Transmission Date: 20130627
  Serious: Yes (Hospitalization)
  Sender: FDA-Public Use
  Company Number: PHEH2012US005474

PATIENT
  Age: 29 Year
  Sex: Female
  Weight: 90.7 kg

DRUGS (7)
  1. GILENYA [Suspect]
     Indication: MULTIPLE SCLEROSIS
     Dosage: 0.5 mg, QD
     Route: 048
     Dates: start: 20110906
  2. GILENYA [Suspect]
     Dosage: 0.5 mg, QD
     Route: 048
  3. GILENYA [Suspect]
     Dosage: 0.5 mg, daily
     Route: 048
     Dates: start: 20120710
  4. SEROQUEL [Concomitant]
     Indication: DEPRESSION
  5. RISPERIDONE [Concomitant]
  6. CYMBALTA [Concomitant]
     Indication: DEPRESSION
     Dosage: 30 mg, UNK
  7. AMLODIPINE [Concomitant]

REACTIONS (7)
  - Neuralgia [Unknown]
  - Facial pain [Recovering/Resolving]
  - Liver injury [Unknown]
  - Cerebral atrophy [Unknown]
  - Malaise [Unknown]
  - Hepatic enzyme increased [Recovered/Resolved]
  - Drug administration error [Unknown]
